FAERS Safety Report 14608134 (Version 1)
Quarter: 2018Q1

REPORT INFORMATION
  Report Type: Spontaneous
  Country: US (occurrence: US)
  Receive Date: 20180307
  Receipt Date: 20180307
  Transmission Date: 20180509
  Serious: Yes (Other)
  Sender: FDA-Public Use
  Company Number: US-SAOL THERAPEUTICS-2018SAO00297

PATIENT
  Age: 32 Year
  Sex: Female
  Weight: 34.14 kg

DRUGS (2)
  1. BACLOFEN. [Suspect]
     Active Substance: BACLOFEN
     Dosage: 918.8 ?G, \DAY
     Route: 037
     Dates: start: 20180210
  2. BACLOFEN. [Suspect]
     Active Substance: BACLOFEN
     Dosage: 915 ?G, \DAY
     Route: 037

REACTIONS (5)
  - Device malfunction [Recovered/Resolved]
  - Sepsis [Unknown]
  - Implant site erythema [Unknown]
  - Implant site haemorrhage [Unknown]
  - Implant site extravasation [Unknown]

NARRATIVE: CASE EVENT DATE: 20180226
